FAERS Safety Report 21680204 (Version 1)
Quarter: 2022Q4

REPORT INFORMATION
  Report Type: Spontaneous
  Country: US (occurrence: US)
  Receive Date: 20221205
  Receipt Date: 20221205
  Transmission Date: 20230113
  Serious: Yes (Hospitalization, Other)
  Sender: FDA-Public Use
  Company Number: US-BoehringerIngelheim-2022-BI-205471

PATIENT
  Age: 79 Year
  Sex: Male

DRUGS (2)
  1. SPIRIVA RESPIMAT [Suspect]
     Active Substance: TIOTROPIUM BROMIDE
     Indication: Chronic obstructive pulmonary disease
     Dosage: 2 PUFFS
     Dates: start: 201804
  2. COUMADIN [Concomitant]
     Active Substance: WARFARIN SODIUM
     Indication: Factor V Leiden mutation
     Dosage: 4 MG 4 DAYS PER WEEK, 6 MG 3 DAYS PER WEEK
     Dates: start: 2009

REACTIONS (10)
  - Cerebral haemorrhage [Recovered/Resolved]
  - Upper gastrointestinal haemorrhage [Recovered/Resolved]
  - Splenomegaly [Recovered/Resolved]
  - Hepatic cirrhosis [Unknown]
  - Fall [Recovered/Resolved with Sequelae]
  - International normalised ratio increased [Recovering/Resolving]
  - Haematemesis [Recovered/Resolved]
  - Thrombosis [Recovered/Resolved]
  - Urinary retention [Recovered/Resolved]
  - Dysuria [Not Recovered/Not Resolved]

NARRATIVE: CASE EVENT DATE: 20220825
